FAERS Safety Report 10522086 (Version 1)
Quarter: 2014Q4

REPORT INFORMATION
  Report Type: Spontaneous
  Country: US (occurrence: None)
  Receive Date: 20141014
  Receipt Date: 20141014
  Transmission Date: 20150528
  Serious: Yes (Hospitalization)
  Sender: FDA-Public Use
  Company Number: US-017285

PATIENT
  Age: 41 Year
  Sex: Female
  Weight: 89.36 kg

DRUGS (2)
  1. LYSTEDA [Suspect]
     Active Substance: TRANEXAMIC ACID
     Indication: MENORRHAGIA
     Route: 048
     Dates: start: 201408, end: 201408
  2. MULTIVITAMIN N  /0220870/ [Concomitant]

REACTIONS (1)
  - Pulmonary embolism [None]

NARRATIVE: CASE EVENT DATE: 2014
